FAERS Safety Report 7563948-5 (Version None)
Quarter: 2011Q2

REPORT INFORMATION
  Report Type: 
  Country: None (occurrence: None)
  Receive Date: 20110622
  Receipt Date: 20110615
  Transmission Date: 20111010
  Serious: Yes (Hospitalization)
  Sender: FDA-Public Use
  Company Number: JP-CEPHALON-2011002513

PATIENT
  Sex: Male

DRUGS (9)
  1. RAMOSETRON HYDROCHLORIDE [Concomitant]
     Dates: start: 20110215, end: 20110406
  2. BROTIZOLAM [Concomitant]
  3. SODIUM PICOSULFATE [Concomitant]
  4. MAGNESIUM OXIDE [Concomitant]
  5. FLUCONAZOLE [Concomitant]
     Dates: start: 20110524
  6. BENDAMUSTINE HCL [Suspect]
     Indication: MANTLE CELL LYMPHOMA
     Route: 042
     Dates: start: 20110215, end: 20110216
  7. BENDAMUSTINE HCL [Suspect]
     Route: 042
     Dates: start: 20110427, end: 20110428
  8. BENDAMUSTINE HCL [Suspect]
     Route: 042
     Dates: start: 20110308, end: 20110309
  9. BENDAMUSTINE HCL [Suspect]
     Route: 042
     Dates: start: 20110405, end: 20110406

REACTIONS (3)
  - PNEUMONIA CYTOMEGALOVIRAL [None]
  - NEUTROPHIL COUNT DECREASED [None]
  - PNEUMOCYSTIS JIROVECI PNEUMONIA [None]
